FAERS Safety Report 21733106 (Version 1)
Quarter: 2022Q4

REPORT INFORMATION
  Report Type: Spontaneous
  Country: JP (occurrence: JP)
  Receive Date: 20221215
  Receipt Date: 20221215
  Transmission Date: 20230112
  Serious: Yes (Hospitalization, Other)
  Sender: FDA-Public Use
  Company Number: JP-GSKNCCC-Case-01589014_AE-63161

PATIENT

DRUGS (7)
  1. LAMICTAL [Suspect]
     Active Substance: LAMOTRIGINE
     Indication: Bipolar disorder
     Dosage: 12.5 MG, QD
     Route: 048
     Dates: start: 201310
  2. LAMICTAL [Suspect]
     Active Substance: LAMOTRIGINE
     Dosage: 25 MG, QD
     Route: 048
  3. LAMICTAL [Suspect]
     Active Substance: LAMOTRIGINE
     Dosage: 75 MG, BID
     Route: 048
  4. LAMICTAL [Suspect]
     Active Substance: LAMOTRIGINE
     Dosage: 2100 MG
     Route: 048
     Dates: start: 202208, end: 202208
  5. QUETIAPINE FUMARATE [Concomitant]
     Active Substance: QUETIAPINE FUMARATE
     Indication: Bipolar disorder
     Dosage: 150 MG, QD
  6. NITRAZEPAM [Concomitant]
     Active Substance: NITRAZEPAM
     Indication: Bipolar disorder
     Dosage: 10 MG, QD
  7. DAYVIGO [Concomitant]
     Active Substance: LEMBOREXANT
     Indication: Bipolar disorder
     Dosage: 25 MG, QD

REACTIONS (10)
  - Muscular weakness [Not Recovered/Not Resolved]
  - Monoplegia [Unknown]
  - Mobility decreased [Unknown]
  - Dyskinesia [Unknown]
  - Grip strength decreased [Unknown]
  - Overdose [Unknown]
  - Prescribed underdose [Unknown]
  - Inappropriate schedule of product administration [Unknown]
  - Product use issue [Unknown]
  - Off label use [Unknown]
